FAERS Safety Report 5101330-0 (Version None)
Quarter: 2006Q3

REPORT INFORMATION
  Report Type: 
  Country: None (occurrence: None)
  Receive Date: 20060906
  Receipt Date: 20060823
  Transmission Date: 20061208
  Serious: Yes (Other)
  Sender: FDA-Public Use
  Company Number: 2006092960

PATIENT
  Age: 74 Year
  Sex: Male

DRUGS (6)
  1. NORVASC [Suspect]
     Indication: HYPERTENSION
     Dosage: 5 MG (2.5 MG, DAILY), ORAL
     Route: 048
     Dates: start: 20030701
  2. CHONDROITIN (CHONDROITIN SULFATE) [Suspect]
     Indication: BACK PAIN
     Dosage: ORAL
     Route: 048
     Dates: end: 20060701
  3. ENALAPRIL MALEATE [Suspect]
     Indication: HYPERTENSION
     Dosage: 5 MG (DAILY), ORAL
     Route: 048
     Dates: start: 20000414
  4. PERYCIT (NICERITROL) [Concomitant]
  5. ISOSORBIDE MONONITRATE [Concomitant]
  6. ALLOPURINOL [Concomitant]

REACTIONS (2)
  - BLOOD PRESSURE DECREASED [None]
  - DRUG INTERACTION [None]
